FAERS Safety Report 10166921 (Version 1)
Quarter: 2014Q2

REPORT INFORMATION
  Report Type: Spontaneous
  Country: US (occurrence: US)
  Receive Date: 20140512
  Receipt Date: 20140512
  Transmission Date: 20141212
  Serious: No
  Sender: FDA-Public Use
  Company Number: US-PFIZER INC-2014126072

PATIENT
  Age: 53 Year
  Sex: Female
  Weight: 79.37 kg

DRUGS (3)
  1. RAPAMUNE [Suspect]
     Dosage: 3 MG, DAILY
     Dates: start: 2011
  2. CELLCEPT [Suspect]
     Dosage: 250 MG, 2X/DAY
     Dates: start: 2011
  3. LIPITOR [Concomitant]
     Dosage: 40 MG, DAILY

REACTIONS (1)
  - Blood creatinine abnormal [Unknown]
